FAERS Safety Report 4879124-0 (Version None)
Quarter: 2006Q1

REPORT INFORMATION
  Report Type: 
  Country: None (occurrence: None)
  Receive Date: 20060112
  Receipt Date: 20060104
  Transmission Date: 20060701
  Serious: Yes (Life-Threatening, Other)
  Sender: FDA-Public Use
  Company Number: JP-JNJFOC-20051106647

PATIENT
  Sex: Female

DRUGS (6)
  1. RISPERDAL [Suspect]
     Route: 048
  2. RISPERDAL [Suspect]
     Route: 048
  3. CLOTIAZEPAM [Suspect]
     Route: 048
  4. DONEPEZIL HYDROCHLORIDE [Concomitant]
     Indication: DEMENTIA
     Route: 048
  5. FUROSEMIDE [Concomitant]
     Indication: CARDIAC FAILURE
     Route: 042
  6. POTASSIUM CANRENOATE [Concomitant]
     Indication: CARDIAC FAILURE
     Route: 042

REACTIONS (6)
  - ASPIRATION [None]
  - CARDIAC ARREST [None]
  - CYANOSIS [None]
  - HYPOXIC ENCEPHALOPATHY [None]
  - MALAISE [None]
  - RESPIRATORY ARREST [None]
